FAERS Safety Report 25063275 (Version 2)
Quarter: 2025Q1

REPORT INFORMATION
  Report Type: Spontaneous
  Country: JP (occurrence: JP)
  Receive Date: 20250311
  Receipt Date: 20250317
  Transmission Date: 20250409
  Serious: Yes (Death, Hospitalization, Other)
  Sender: GILEAD
  Company Number: JP-GILEAD-2025-0706636

PATIENT
  Sex: Female

DRUGS (2)
  1. TRODELVY [Suspect]
     Active Substance: SACITUZUMAB GOVITECAN-HZIY
     Indication: Triple negative breast cancer
     Route: 065
     Dates: start: 20250213, end: 20250213
  2. TRODELVY [Suspect]
     Active Substance: SACITUZUMAB GOVITECAN-HZIY
     Route: 065
     Dates: start: 20250220

REACTIONS (10)
  - Gastrointestinal necrosis [Fatal]
  - Ileus [Fatal]
  - Septic shock [Unknown]
  - Post procedural haemorrhage [Unknown]
  - Intestinal ischaemia [Unknown]
  - Thrombosis mesenteric vessel [Unknown]
  - Biliary ischaemia [Unknown]
  - Neutropenia [Unknown]
  - White blood cell count decreased [Unknown]
  - Platelet count decreased [Unknown]

NARRATIVE: CASE EVENT DATE: 20250201
